FAERS Safety Report 8617697-2 (Version None)
Quarter: 2012Q3

REPORT INFORMATION
  Report Type: 
  Country: None (occurrence: None)
  Receive Date: 20120824
  Receipt Date: 20120117
  Transmission Date: 20120928
  Serious: No
  Sender: FDA-Public Use
  Company Number: US-ASTRAZENECA-2012SE03774

PATIENT
  Age: 53 Year
  Sex: Female

DRUGS (5)
  1. SYMBICORT [Suspect]
     Route: 055
  2. METFORMIN HCL [Concomitant]
  3. NEXIUM [Suspect]
     Route: 048
  4. CRESTOR [Suspect]
     Route: 048
  5. INSULIN [Concomitant]

REACTIONS (2)
  - DIABETES MELLITUS [None]
  - VISION BLURRED [None]
